FAERS Safety Report 14324403 (Version 2)
Quarter: 2018Q1

REPORT INFORMATION
  Report Type: Spontaneous
  Country: BY (occurrence: BY)
  Receive Date: 20171226
  Receipt Date: 20180105
  Transmission Date: 20180509
  Serious: Yes (Death)
  Sender: FDA-Public Use
  Company Number: BY-MALLINCKRODT-T201705328

PATIENT
  Age: 71 Year
  Sex: Male

DRUGS (4)
  1. GABAPENTIN. [Concomitant]
     Active Substance: GABAPENTIN
     Indication: PRODUCT USED FOR UNKNOWN INDICATION
     Dosage: 300 MG, 3 IN 1 DAY
     Route: 065
     Dates: start: 20170428
  2. AMITRIPTYLINE [Concomitant]
     Active Substance: AMITRIPTYLINE
     Indication: PRODUCT USED FOR UNKNOWN INDICATION
     Dosage: 25 MG, 2 IN 1 DAY
     Dates: start: 20170428
  3. EXALGO [Suspect]
     Active Substance: HYDROMORPHONE HYDROCHLORIDE
     Indication: PAIN
     Dosage: 8 MG, ONCE DAILY
     Route: 048
     Dates: start: 20170428, end: 20170714
  4. XEFOCAM RAPID [Concomitant]
     Indication: PRODUCT USED FOR UNKNOWN INDICATION
     Dosage: 8 MG, 2 IN 1 DAY
     Dates: start: 20170428

REACTIONS (4)
  - Malignant neoplasm progression [Fatal]
  - Panic attack [Unknown]
  - Bone pain [Unknown]
  - Dyspnoea [Fatal]
